FAERS Safety Report 5870637-1 (Version None)
Quarter: 2008Q3

REPORT INFORMATION
  Report Type: 
  Country: None (occurrence: None)
  Receive Date: 20080904
  Receipt Date: 20080901
  Transmission Date: 20090109
  Serious: Yes (Other)
  Sender: FDA-Public Use
  Company Number: D0056815A

PATIENT
  Age: 63 Year
  Sex: Female
  Weight: 74 kg

DRUGS (3)
  1. ELONTRIL [Suspect]
     Indication: DEPRESSION
     Route: 048
     Dates: start: 20071020, end: 20071130
  2. EUTHYROX [Concomitant]
     Dosage: 50UG PER DAY
     Route: 048
  3. MICARDIS [Concomitant]
     Dosage: 80MG PER DAY
     Route: 048

REACTIONS (3)
  - AGGRESSION [None]
  - AGITATION [None]
  - SLEEP DISORDER [None]
